FAERS Safety Report 15169485 (Version 1)
Quarter: 2018Q3

REPORT INFORMATION
  Report Type: Report from Study
  Country: US (occurrence: US)
  Receive Date: 20180720
  Receipt Date: 20180720
  Transmission Date: 20181010
  Serious: Yes (Hospitalization, Other)
  Sender: FDA-Public Use
  Company Number: US-GILEAD-2018-0350719

PATIENT
  Age: 74 Year
  Sex: Female

DRUGS (9)
  1. INDAPAMIDE. [Concomitant]
     Active Substance: INDAPAMIDE
  2. LORAZEPAM. [Concomitant]
     Active Substance: LORAZEPAM
  3. AMBRISENTAN [Suspect]
     Active Substance: AMBRISENTAN
     Indication: PULMONARY ARTERIAL HYPERTENSION
     Dosage: 5 MG, QD
     Route: 065
     Dates: start: 20171223
  4. FERROUS SULFATE. [Concomitant]
     Active Substance: FERROUS SULFATE
  5. ADCIRCA [Concomitant]
     Active Substance: TADALAFIL
  6. ATORVASTATIN [Concomitant]
     Active Substance: ATORVASTATIN
  7. METOPROLOL. [Concomitant]
     Active Substance: METOPROLOL
  8. EZETIMIBE. [Concomitant]
     Active Substance: EZETIMIBE
  9. MYCOPHENOLATE [Concomitant]
     Active Substance: MYCOPHENOLIC ACID

REACTIONS (1)
  - Carotid artery occlusion [Recovered/Resolved]
